FAERS Safety Report 5647965-8 (Version None)
Quarter: 2008Q1

REPORT INFORMATION
  Report Type: 
  Country: None (occurrence: None)
  Receive Date: 20080229
  Receipt Date: 20080214
  Transmission Date: 20080703
  Serious: Yes (Other)
  Sender: FDA-Public Use
  Company Number: 2008-01458

PATIENT
  Sex: Male

DRUGS (1)
  1. BUPROPION HYDORCHLORIDE XL [Suspect]
     Indication: DRUG USE FOR UNKNOWN INDICATION
     Dosage: 1 TABLET, QAM, ORAL
     Route: 048
     Dates: start: 20080201

REACTIONS (7)
  - AGGRESSION [None]
  - MANIA [None]
  - MENTAL DISORDER [None]
  - ORAL INTAKE REDUCED [None]
  - PARANOIA [None]
  - PERSONALITY CHANGE [None]
  - SCHIZOPHRENIFORM DISORDER [None]
